FAERS Safety Report 7932724-3 (Version None)
Quarter: 2011Q4

REPORT INFORMATION
  Report Type: 
  Country: None (occurrence: None)
  Receive Date: 20111122
  Receipt Date: 20111116
  Transmission Date: 20120403
  Serious: Yes (Other)
  Sender: FDA-Public Use
  Company Number: ES-SHIRE-SPV1-2011-01414

PATIENT
  Age: 60 Year
  Sex: Male

DRUGS (1)
  1. ANAGRELIDE HYDROCHLORIDE [Suspect]
     Indication: ESSENTIAL THROMBOCYTHAEMIA
     Dosage: UNK
     Route: 048
     Dates: start: 20010101

REACTIONS (3)
  - PULMONARY FIBROSIS [None]
  - ATRIAL FIBRILLATION [None]
  - RETROPERITONEAL FIBROSIS [None]
